FAERS Safety Report 5500222-2 (Version None)
Quarter: 2007Q4

REPORT INFORMATION
  Report Type: 
  Country: None (occurrence: None)
  Receive Date: 20071025
  Receipt Date: 20071003
  Transmission Date: 20080405
  Serious: No
  Sender: FDA-Public Use
  Company Number: US021390

PATIENT
  Age: 43 Year
  Sex: Male
  Weight: 83.9154 kg

DRUGS (3)
  1. FENTORA [Suspect]
     Indication: PAIN
     Dosage: 600 UG BID BUCCAL
     Route: 002
     Dates: start: 20061001, end: 20061002
  2. DURAGESIC-100 [Concomitant]
  3. XANAX [Concomitant]

REACTIONS (1)
  - RETCHING [None]
